FAERS Safety Report 26204027 (Version 1)
Quarter: 2025Q4

REPORT INFORMATION
  Report Type: Spontaneous
  Country: US (occurrence: US)
  Receive Date: 20251226
  Receipt Date: 20251226
  Transmission Date: 20260117
  Serious: No
  Sender: Kenvue
  Company Number: US-KENVUE-20251202981

PATIENT

DRUGS (1)
  1. CHILDRENS MOTRIN [Suspect]
     Active Substance: IBUPROFEN
     Indication: Pain
     Dosage: LIVED OFF OF LIKE 5 BOTTLES (THE WHOLE WEEK)
     Route: 065

REACTIONS (1)
  - Product administered to patient of inappropriate age [Unknown]
